FAERS Safety Report 20434056 (Version 1)
Quarter: 2022Q1

REPORT INFORMATION
  Report Type: Report from Study
  Country: CO (occurrence: CO)
  Receive Date: 20220205
  Receipt Date: 20220205
  Transmission Date: 20220423
  Serious: Yes (Other)
  Sender: FDA-Public Use
  Company Number: CO-NOVARTISPH-NVSC2022CO019345

PATIENT
  Sex: Female
  Weight: 61 kg

DRUGS (2)
  1. METFORMIN [Suspect]
     Active Substance: METFORMIN HYDROCHLORIDE
     Indication: Diabetes mellitus
     Dosage: UNK SINCE 2016 (WITHOUT EXACT DATE)
     Route: 048
     Dates: start: 2016
  2. LOSARTAN [Suspect]
     Active Substance: LOSARTAN
     Indication: Hypertension
     Dosage: UNK SINCE 2013 (WITHOUT EXACT DATE)
     Route: 048
     Dates: start: 2013

REACTIONS (2)
  - Metastases to lung [Unknown]
  - Breast cancer [Unknown]

NARRATIVE: CASE EVENT DATE: 20140101
